FAERS Safety Report 9440685 (Version 1)
Quarter: 2013Q3

REPORT INFORMATION
  Report Type: Spontaneous
  Country: US (occurrence: US)
  Receive Date: 20130805
  Receipt Date: 20130805
  Transmission Date: 20140515
  Serious: Yes (Hospitalization)
  Sender: FDA-Public Use
  Company Number: US-JNJFOC-20130717086

PATIENT
  Age: 69 Year
  Sex: Female

DRUGS (4)
  1. XARELTO [Suspect]
     Indication: CEREBROVASCULAR ACCIDENT PROPHYLAXIS
     Route: 048
     Dates: start: 201302
  2. XARELTO [Suspect]
     Indication: ATRIAL FIBRILLATION
     Route: 048
     Dates: start: 201302
  3. SOTALOL [Concomitant]
     Indication: ARRHYTHMIA
     Route: 048
     Dates: start: 201303
  4. CLONAZEPAM [Concomitant]
     Indication: SLEEP DISORDER
     Dosage: HAS BEEN FOR ABOUT 15 MONTHS
     Route: 048

REACTIONS (5)
  - Heart rate increased [Recovered/Resolved]
  - Dizziness [Not Recovered/Not Resolved]
  - Asthenia [Recovered/Resolved]
  - Contusion [Not Recovered/Not Resolved]
  - Blood pressure fluctuation [Not Recovered/Not Resolved]
